FAERS Safety Report 4577966-2 (Version None)
Quarter: 2005Q1

REPORT INFORMATION
  Report Type: 
  Country: None (occurrence: None)
  Receive Date: 20050209
  Receipt Date: 20050127
  Transmission Date: 20050727
  Serious: Yes (Death)
  Sender: FDA-Public Use
  Company Number: 2005021759

PATIENT
  Age: 63 Year
  Sex: Female

DRUGS (2)
  1. AZULFIDINE EN-TABS [Suspect]
     Indication: RHEUMATOID ARTHRITIS
     Dosage: 500 MG ORAL
     Route: 048
     Dates: start: 20041007, end: 20041022
  2. DICLOFENAC SODIUM [Concomitant]

REACTIONS (4)
  - CONDITION AGGRAVATED [None]
  - INFECTION [None]
  - INTERSTITIAL LUNG DISEASE [None]
  - NASOPHARYNGITIS [None]
